FAERS Safety Report 7131043-5 (Version None)
Quarter: 2010Q4

REPORT INFORMATION
  Report Type: 
  Country: None (occurrence: None)
  Receive Date: 20101201
  Receipt Date: 20101124
  Transmission Date: 20110411
  Serious: Yes (Hospitalization, Other)
  Sender: FDA-Public Use
  Company Number: B0686893A

PATIENT
  Age: 74 Year
  Sex: Male

DRUGS (1)
  1. HYCAMTIN [Suspect]
     Dosage: 1MG PER DAY
     Route: 042
     Dates: start: 20100726, end: 20100730

REACTIONS (5)
  - ANAEMIA [None]
  - DYSPNOEA [None]
  - INTERSTITIAL LUNG DISEASE [None]
  - NAUSEA [None]
  - PLEURAL EFFUSION [None]
